FAERS Safety Report 8089363-6 (Version None)
Quarter: 2012Q1

REPORT INFORMATION
  Report Type: 
  Country: None (occurrence: None)
  Receive Date: 20120128
  Receipt Date: 20110701
  Transmission Date: 20120608
  Serious: No
  Sender: FDA-Public Use
  Company Number: US-ABBOTT-11P-163-0835775-00

PATIENT
  Age: 58 Year
  Sex: Female

DRUGS (5)
  1. NATURAL JOINT VIT [Concomitant]
     Indication: VITAMIN SUPPLEMENTATION
  2. MULTIVITAMIN [Concomitant]
     Indication: VITAMIN SUPPLEMENTATION
  3. HUMIRA [Suspect]
     Indication: RHEUMATOID ARTHRITIS
     Dates: start: 20100701
  4. METHOTREXATE [Concomitant]
     Indication: RHEUMATOID ARTHRITIS
  5. FOLIC ACID [Concomitant]
     Indication: VITAMIN SUPPLEMENTATION
     Dosage: QID

REACTIONS (3)
  - DRUG DOSE OMISSION [None]
  - DEVICE MALFUNCTION [None]
  - RASH [None]
